FAERS Safety Report 13500042 (Version 2)
Quarter: 2017Q2

REPORT INFORMATION
  Report Type: Report from Study
  Country: US (occurrence: US)
  Receive Date: 20170501
  Receipt Date: 20170504
  Transmission Date: 20170830
  Serious: No
  Sender: FDA-Public Use
  Company Number: US-ALEXION PHARMACEUTICALS INC.-A201704343

PATIENT
  Age: 48 Year
  Sex: Male

DRUGS (1)
  1. SOLIRIS [Suspect]
     Active Substance: ECULIZUMAB
     Indication: HAEMOLYTIC URAEMIC SYNDROME
     Dosage: 900 MG, UNK
     Route: 042
     Dates: start: 20170207, end: 20170207

REACTIONS (5)
  - Feeling abnormal [Unknown]
  - Nausea [Not Recovered/Not Resolved]
  - Headache [Not Recovered/Not Resolved]
  - Decreased appetite [Not Recovered/Not Resolved]
  - Peripheral swelling [Unknown]

NARRATIVE: CASE EVENT DATE: 20170330
